FAERS Safety Report 4444003-X (Version None)
Quarter: 2004Q3

REPORT INFORMATION
  Report Type: 
  Country: None (occurrence: None)
  Receive Date: 20040729
  Receipt Date: 20031016
  Transmission Date: 20050211
  Serious: Yes (Other)
  Sender: FDA-Public Use
  Company Number: US-JNJFOC-20031003880

PATIENT
  Sex: Male

DRUGS (2)
  1. RISPERDAL [Suspect]
     Dosage: 3 MG, 2 IN 1 DAY, ORAL
     Route: 048
  2. LIPITOR [Concomitant]

REACTIONS (1)
  - LIVER FUNCTION TEST ABNORMAL [None]
